FAERS Safety Report 11030364 (Version 1)
Quarter: 2015Q2

REPORT INFORMATION
  Report Type: Spontaneous
  Country: IT (occurrence: None)
  Receive Date: 20150406
  Receipt Date: 20150406
  Transmission Date: 20150821
  Serious: Yes (Death)
  Sender: FDA-Public Use
  Company Number: IT-004389

PATIENT
  Age: 80 Year
  Sex: Female

DRUGS (5)
  1. IOPAMIRO [Suspect]
     Active Substance: IOPAMIDOL
     Indication: SCAN BRAIN
     Route: 042
     Dates: start: 20150320, end: 20150320
  2. CARDIOASPIRIN (ACETYLSALICYLIC ACID) [Concomitant]
     Active Substance: ASPIRIN
  3. LEVEMIR [Concomitant]
     Active Substance: INSULIN DETEMIR
  4. NOVORAPID [Concomitant]
     Active Substance: INSULIN ASPART
  5. NORVASC [Concomitant]
     Active Substance: AMLODIPINE BESYLATE

REACTIONS (1)
  - Cardio-respiratory arrest [None]

NARRATIVE: CASE EVENT DATE: 20150320
